FAERS Safety Report 9437232 (Version 5)
Quarter: 2020Q2

REPORT INFORMATION
  Report Type: Report from Study
  Country: US (occurrence: US)
  Receive Date: 20130802
  Receipt Date: 20200415
  Transmission Date: 20200714
  Serious: Yes (Other)
  Sender: FDA-Public Use
  Company Number: US-SANOFI-AVENTIS-2013SA077669

PATIENT
  Age: 59 Year
  Sex: Male

DRUGS (3)
  1. INSULIN GLARGINE [Suspect]
     Active Substance: INSULIN GLARGINE
     Dosage: 120 IU, QD
     Route: 058
  2. INSULIN GLARGINE [Suspect]
     Active Substance: INSULIN GLARGINE
     Indication: DIABETES MELLITUS
     Dosage: 75 IU,QD
     Route: 058
     Dates: start: 2012
  3. INSULIN GLARGINE [Suspect]
     Active Substance: INSULIN GLARGINE
     Dosage: 60 IU, Q12H
     Route: 058

REACTIONS (3)
  - Blindness unilateral [Recovering/Resolving]
  - Inappropriate schedule of product administration [Unknown]
  - Neuropathy peripheral [Unknown]
